FAERS Safety Report 11895274 (Version 1)
Quarter: 2016Q1

REPORT INFORMATION
  Report Type: Spontaneous
  Country: US (occurrence: None)
  Receive Date: 20160106
  Receipt Date: 20160106
  Transmission Date: 20160526
  Serious: No
  Sender: FDA-Public Use
  Company Number: None

PATIENT
  Age: 64 Year
  Sex: Female

DRUGS (18)
  1. BUDESONIDE. [Concomitant]
     Active Substance: BUDESONIDE
  2. BUSPIRONE [Concomitant]
     Active Substance: BUSPIRONE HYDROCHLORIDE
  3. OMEPRAZOLE. [Concomitant]
     Active Substance: OMEPRAZOLE
  4. ESTRACE [Concomitant]
     Active Substance: ESTRADIOL
  5. QUIATUSS [Concomitant]
  6. MONTELUKAST [Concomitant]
     Active Substance: MONTELUKAST SODIUM
  7. VICTOZA [Concomitant]
     Active Substance: LIRAGLUTIDE
  8. WELLBUTININ [Concomitant]
  9. PHENYLEPHRIN [Concomitant]
     Active Substance: PHENYLEPHRINE HYDROCHLORIDE
  10. VIT. D3 [Concomitant]
  11. LOXAPOROL [Concomitant]
  12. GLIMEPIRIDE. [Concomitant]
     Active Substance: GLIMEPIRIDE
  13. TRAZODONE [Concomitant]
     Active Substance: TRAZODONE HYDROCHLORIDE
  14. VIVELLE-DOT [Concomitant]
     Active Substance: ESTRADIOL
  15. HARVONI [Suspect]
     Active Substance: LEDIPASVIR\SOFOSBUVIR
     Indication: HEPATITIS C
     Route: 048
  16. RIBASPHERE [Suspect]
     Active Substance: RIBAVIRIN
     Indication: HEPATITIS C
     Route: 048
  17. BENZONATATE. [Concomitant]
     Active Substance: BENZONATATE
  18. CLEMASTINE [Concomitant]
     Active Substance: CLEMASTINE

REACTIONS (1)
  - Constipation [None]

NARRATIVE: CASE EVENT DATE: 201512
